FAERS Safety Report 7062600 (Version 19)
Quarter: 2014Q1

REPORT INFORMATION
  Report Type: Spontaneous
  Country: US (occurrence: US)
  Receive Date: 20090724
  Receipt Date: 20140129
  Transmission Date: 20141002
  Serious: Yes (Other)
  Sender: FDA-Public Use
  Company Number: PHEH2009US07548

PATIENT
  Sex: Female

DRUGS (14)
  1. AREDIA [Suspect]
     Route: 042
  2. ZOMETA [Suspect]
     Indication: OSTEOPOROSIS
     Dosage: 4 MG,
     Route: 042
  3. ZOLOFT (SERTRALINE HYDROCHLORIDE) [Concomitant]
  4. DEXEDRINE [Concomitant]
  5. INTERFERON [Concomitant]
  6. ASPIRIN [Concomitant]
  7. VICODIN ES [Concomitant]
  8. CLINDAMYCIN [Concomitant]
     Dosage: 300 MG, QID
  9. PERIDEX [Concomitant]
  10. PERCOCET [Concomitant]
  11. ZANTAC [Concomitant]
  12. LIPITOR [Concomitant]
  13. ATENOLOL [Concomitant]
  14. ZOLOFT [Concomitant]

REACTIONS (65)
  - Plasma cell myeloma [Unknown]
  - Metastases to bone [Unknown]
  - Osteonecrosis of jaw [Unknown]
  - General physical health deterioration [Unknown]
  - Pain [Unknown]
  - Osteomyelitis [Unknown]
  - Anxiety [Unknown]
  - Exposed bone in jaw [Unknown]
  - Pain in jaw [Unknown]
  - Anhedonia [Unknown]
  - Intervertebral disc degeneration [Unknown]
  - Rib fracture [Unknown]
  - Hypertension [Unknown]
  - Cerebrovascular accident [Unknown]
  - Deafness neurosensory [Unknown]
  - Depression [Unknown]
  - Immunodeficiency [Unknown]
  - Eustachian tube dysfunction [Unknown]
  - Renal failure [Unknown]
  - Sinus bradycardia [Unknown]
  - Radius fracture [Unknown]
  - Fall [Unknown]
  - Diverticulitis [Unknown]
  - Gastrooesophageal reflux disease [Unknown]
  - Haemorrhoids [Unknown]
  - Embolism [Unknown]
  - Hyperlipidaemia [Unknown]
  - Blood cholesterol increased [Unknown]
  - Nausea [Unknown]
  - Tinnitus [Unknown]
  - Vertigo [Unknown]
  - Cerumen impaction [Unknown]
  - Cerebral artery occlusion [Unknown]
  - Cerebral infarction [Unknown]
  - Tricuspid valve incompetence [Unknown]
  - Vision blurred [Unknown]
  - Migraine [Unknown]
  - Visual acuity reduced [Unknown]
  - Seasonal allergy [Recovered/Resolved]
  - Sinus disorder [Recovered/Resolved]
  - Dysthymic disorder [Unknown]
  - Intracranial aneurysm [Unknown]
  - Attention deficit/hyperactivity disorder [Unknown]
  - Renal failure chronic [Unknown]
  - Intervertebral disc space narrowing [Unknown]
  - Exostosis [Unknown]
  - Lactose intolerance [Unknown]
  - Irritable bowel syndrome [Unknown]
  - Cerebellar infarction [Unknown]
  - Cerebral small vessel ischaemic disease [Unknown]
  - Retinal detachment [Unknown]
  - Hypercholesterolaemia [Unknown]
  - Vitreous floaters [Unknown]
  - Arthropathy [Unknown]
  - Scoliosis [Unknown]
  - Proteinuria [Unknown]
  - Renal cyst [Unknown]
  - Clostridium difficile colitis [Unknown]
  - Narcolepsy [Unknown]
  - Dehydration [Unknown]
  - Abdominal pain [Unknown]
  - Tenderness [Unknown]
  - Spinal compression fracture [Unknown]
  - Spinal osteoarthritis [Unknown]
  - Foot fracture [Unknown]
